FAERS Safety Report 8954117 (Version 2)
Quarter: 2012Q4

REPORT INFORMATION
  Report Type: 
  Country: DE (occurrence: NL)
  Receive Date: 20121207
  Receipt Date: 20121217
  Transmission Date: 20130627
  Serious: Yes (Death)
  Sender: FDA-Public Use
  Company Number: NL-GENZYME-CAMP-1002589

PATIENT
  Age: 66 Year
  Sex: Male
  Weight: 71 kg

DRUGS (9)
  1. CAMPATH [Suspect]
     Indication: T-CELL LYMPHOMA
     Dosage: 30 mg, qd
     Route: 058
     Dates: start: 20121123, end: 20121123
  2. CYCLOPHOSPHAMIDE [Suspect]
     Indication: T-CELL LYMPHOMA
     Dosage: 1430 mg, qd
     Route: 042
     Dates: start: 20121123, end: 20121123
  3. DOXORUBICINE [Suspect]
     Indication: T-CELL LYMPHOMA
     Dosage: 95 mg, qd
     Route: 042
     Dates: start: 20121123, end: 20121123
  4. VINCRISTINE [Suspect]
     Indication: T-CELL LYMPHOMA
     Dosage: 1 mg, qd
     Route: 042
     Dates: start: 20121116, end: 20121116
  5. PREDNISONE [Suspect]
     Indication: T-CELL LYMPHOMA
     Dosage: 100 mg, qd
     Route: 048
     Dates: start: 20121116, end: 20121120
  6. PEGFILGRASTIM [Suspect]
     Indication: T-CELL LYMPHOMA
     Dosage: 6 mg, qd
     Route: 058
     Dates: start: 20121124, end: 20121124
  7. VALACICLOVIR [Concomitant]
     Indication: PROPHYLAXIS
     Dosage: 500 mg, bid
     Route: 048
     Dates: start: 20121123
  8. TRIMETHOPRIM SULFAMETHOXAZOLE [Concomitant]
     Indication: PROPHYLAXIS
     Dosage: 960 mg, bid (3 times a week)
     Route: 048
     Dates: start: 20121123
  9. TINZAPARIN [Concomitant]
     Indication: PROPHYLAXIS
     Dosage: 14000 iu, qd
     Route: 058
     Dates: start: 20121115, end: 20121125

REACTIONS (6)
  - Lactic acidosis [Fatal]
  - Hepatic enzyme increased [Fatal]
  - Groin pain [Fatal]
  - White blood cell count increased [Fatal]
  - Dehydration [Fatal]
  - Anaemia [Fatal]
